FAERS Safety Report 24243580 (Version 1)
Quarter: 2024Q3

REPORT INFORMATION
  Report Type: Spontaneous
  Country: US (occurrence: None)
  Receive Date: 20240823
  Receipt Date: 20240823
  Transmission Date: 20241017
  Serious: Yes (Hospitalization, Other)
  Sender: EMMAUS LIFE SCIENCES
  Company Number: US-Emmaus Medical, Inc.-EMM202306-000139

PATIENT
  Age: 16 Year
  Sex: Female

DRUGS (4)
  1. ENDARI [Suspect]
     Active Substance: GLUTAMINE
     Indication: Haemoglobin C disease
     Dosage: 10 G
     Route: 048
     Dates: start: 202006
  2. ENDARI [Suspect]
     Active Substance: GLUTAMINE
     Dosage: 10 G
     Route: 048
     Dates: start: 20220902
  3. ENDARI [Suspect]
     Active Substance: GLUTAMINE
     Dosage: 10 G
     Route: 048
     Dates: start: 202307
  4. ENDARI [Suspect]
     Active Substance: GLUTAMINE
     Dosage: 15 G
     Route: 048
     Dates: start: 202307

REACTIONS (3)
  - Sickle cell anaemia with crisis [Unknown]
  - Migraine [Not Recovered/Not Resolved]
  - Product dose omission issue [Unknown]

NARRATIVE: CASE EVENT DATE: 20230101
